FAERS Safety Report 19924401 (Version 3)
Quarter: 2021Q4

REPORT INFORMATION
  Report Type: Spontaneous
  Country: PL (occurrence: PL)
  Receive Date: 20211006
  Receipt Date: 20211025
  Transmission Date: 20220303
  Serious: Yes (Other)
  Sender: FDA-Public Use
  Company Number: PL-002147023-NVSC2021PL118760

PATIENT
  Age: 35 Year
  Sex: Male
  Weight: 103 kg

DRUGS (5)
  1. METOPROLOL [Suspect]
     Active Substance: METOPROLOL
     Indication: Hypertension
     Dosage: 1 DOSAGE FORM, QD (1 DF, QD (BRAND NAME: BETO ZK 100))
     Route: 065
  2. METOPROLOL SUCCINATE [Concomitant]
     Active Substance: METOPROLOL SUCCINATE
     Indication: Hypertension
     Dosage: 95 MG (ONE TABLET DAILY IN THE MORNING AT 9:00 AM)
  3. METOPROLOL SUCCINATE [Concomitant]
     Active Substance: METOPROLOL SUCCINATE
     Indication: Chest pain
  4. METOPROLOL SUCCINATE [Concomitant]
     Active Substance: METOPROLOL SUCCINATE
     Indication: Cardiac disorder
  5. METOPROLOL SUCCINATE [Concomitant]
     Active Substance: METOPROLOL SUCCINATE
     Indication: Palpitations

REACTIONS (39)
  - Bradycardia [Unknown]
  - Arrhythmia [Unknown]
  - Erectile dysfunction [Unknown]
  - Atrioventricular block [Unknown]
  - Chest pain [Unknown]
  - Palpitations [Unknown]
  - Memory impairment [Unknown]
  - Heart rate irregular [Unknown]
  - Arthralgia [Unknown]
  - Glare [Unknown]
  - Weight decreased [Unknown]
  - Muscle spasms [Unknown]
  - Hyperhidrosis [Unknown]
  - Psoriasis [Unknown]
  - Tension [Unknown]
  - Nightmare [Unknown]
  - Visual impairment [Unknown]
  - Alopecia [Unknown]
  - Headache [Unknown]
  - Paraesthesia [Unknown]
  - Blood pressure decreased [Unknown]
  - Mood swings [Unknown]
  - Hypoaesthesia [Unknown]
  - Somnolence [Unknown]
  - Vision blurred [Unknown]
  - Abdominal pain [Unknown]
  - Constipation [Unknown]
  - Myalgia [Unknown]
  - Nervousness [Unknown]
  - Depression [Unknown]
  - Nausea [Unknown]
  - Tinnitus [Unknown]
  - Hepatic steatosis [Unknown]
  - Blood cholesterol increased [Unknown]
  - Dyspepsia [Not Recovered/Not Resolved]
  - Feeling abnormal [Unknown]
  - Low density lipoprotein increased [Unknown]
  - Diarrhoea [Unknown]
  - Tachycardia [Unknown]
